FAERS Safety Report 12203581 (Version 1)
Quarter: 2016Q1

REPORT INFORMATION
  Report Type: Spontaneous
  Country: US (occurrence: None)
  Receive Date: 20160321
  Receipt Date: 20160321
  Transmission Date: 20160526
  Serious: Yes (Other)
  Sender: FDA-Public Use
  Company Number: None

PATIENT

DRUGS (1)
  1. LIDOCAINE 1% [Suspect]
     Active Substance: LIDOCAINE
     Indication: CIRCUMCISION
     Dates: start: 20160313, end: 20160314

REACTIONS (2)
  - Screaming [None]
  - Product quality issue [None]
